FAERS Safety Report 7112106-7 (Version None)
Quarter: 2010Q4

REPORT INFORMATION
  Report Type: 
  Country: None (occurrence: None)
  Receive Date: 20101119
  Receipt Date: 20091104
  Transmission Date: 20110411
  Serious: No
  Sender: FDA-Public Use
  Company Number: A0814834A

PATIENT
  Age: 85 Year
  Sex: Male

DRUGS (2)
  1. AVODART [Suspect]
     Dosage: .5MG IN THE MORNING
     Route: 048
     Dates: start: 20091101
  2. ALFUZOSIN [Concomitant]
     Route: 065

REACTIONS (3)
  - DISORIENTATION [None]
  - MIGRAINE WITH AURA [None]
  - VISION BLURRED [None]
